FAERS Safety Report 5629583-0 (Version None)
Quarter: 2008Q1

REPORT INFORMATION
  Report Type: 
  Country: None (occurrence: None)
  Receive Date: 20080218
  Receipt Date: 20080207
  Transmission Date: 20080703
  Serious: Yes (Other)
  Sender: FDA-Public Use
  Company Number: US-AMGEN-QUU243855

PATIENT
  Sex: Female
  Weight: 114.4 kg

DRUGS (17)
  1. ENBREL [Suspect]
     Indication: RHEUMATOID ARTHRITIS
     Route: 058
     Dates: start: 20030121, end: 20050816
  2. TRIAMTERENE AND HYDROCHLOROTHIAZIDE [Concomitant]
     Dates: start: 20040113
  3. ESTRATEST [Concomitant]
     Dates: start: 20040113
  4. ZYRTEC [Concomitant]
     Dates: start: 20040113
  5. LIPITOR [Concomitant]
     Dates: start: 20040113
  6. LORAZEPAM [Concomitant]
     Dates: start: 20040113, end: 20050112
  7. VITAMIN CAP [Concomitant]
     Dates: start: 20040113
  8. VITAMIN B COMPLEX CAP [Concomitant]
     Dates: start: 20040113, end: 20050112
  9. CITRACAL [Concomitant]
     Dates: start: 20040113
  10. AZULFIDINE EN-TABS [Concomitant]
     Dates: start: 20040113
  11. FISH OIL [Concomitant]
     Dates: start: 20040113
  12. LEXAPRO [Concomitant]
     Dates: start: 20040113
  13. VITAMIN E [Concomitant]
     Dates: start: 20040113, end: 20050112
  14. TOPROL-XL [Concomitant]
     Dates: start: 20040113, end: 20050510
  15. TOPROL-XL [Concomitant]
     Dates: start: 20050510
  16. METROGEL [Concomitant]
     Dates: start: 20040914
  17. SONATA [Concomitant]
     Dates: start: 20050112

REACTIONS (5)
  - ARTHRITIS [None]
  - CHOLELITHIASIS [None]
  - COLORECTAL CANCER METASTATIC [None]
  - LOWER EXTREMITY MASS [None]
  - VAGINAL INFECTION [None]
